FAERS Safety Report 25462751 (Version 1)
Quarter: 2025Q2

REPORT INFORMATION
  Report Type: Spontaneous
  Country: US (occurrence: US)
  Receive Date: 20250620
  Receipt Date: 20250620
  Transmission Date: 20250716
  Serious: No
  Sender: PFIZER
  Company Number: US-PFIZER INC-202500124668

PATIENT
  Age: 62 Year
  Sex: Female

DRUGS (20)
  1. IBRANCE [Suspect]
     Active Substance: PALBOCICLIB
     Route: 048
     Dates: start: 20250506
  2. ITOVEBI [Suspect]
     Active Substance: INAVOLISIB
  3. ATORVASTATIN CALCIUM [Concomitant]
     Active Substance: ATORVASTATIN CALCIUM
  4. BELBUCA [Concomitant]
     Active Substance: BUPRENORPHINE HYDROCHLORIDE
  5. DICLOFENAC [Concomitant]
     Active Substance: DICLOFENAC
  6. GABAPENTIN [Concomitant]
     Active Substance: GABAPENTIN
  7. LEXAPRO [Concomitant]
     Active Substance: ESCITALOPRAM OXALATE
  8. LINZESS [Concomitant]
     Active Substance: LINACLOTIDE
  9. METFORMIN [Concomitant]
     Active Substance: METFORMIN HYDROCHLORIDE
  10. METHOCARBAMOL [Concomitant]
     Active Substance: METHOCARBAMOL
  11. METHYLPREDNISOLONE [Concomitant]
     Active Substance: METHYLPREDNISOLONE
  12. MONTELUKAST [Concomitant]
     Active Substance: MONTELUKAST
  13. OXYCODONE AND ACETAMINOPHEN [Concomitant]
     Active Substance: ACETAMINOPHEN\OXYCODONE HYDROCHLORIDE
  14. OXYCODONE [Concomitant]
     Active Substance: OXYCODONE
  15. PANTOPRAZOLE [Concomitant]
     Active Substance: PANTOPRAZOLE
  16. PREDNISONE [Concomitant]
     Active Substance: PREDNISONE
  17. TOPIRAMATE [Concomitant]
     Active Substance: TOPIRAMATE
  18. VRAYLAR [Concomitant]
     Active Substance: CARIPRAZINE
  19. ZOLEDRONIC [Concomitant]
     Active Substance: ZOLEDRONIC ACID
  20. ZOLPIDEM [Concomitant]
     Active Substance: ZOLPIDEM TARTRATE

REACTIONS (1)
  - Blood glucose increased [Not Recovered/Not Resolved]
